FAERS Safety Report 7941306-9 (Version None)
Quarter: 2011Q4

REPORT INFORMATION
  Report Type: 
  Country: None (occurrence: None)
  Receive Date: 20111122
  Receipt Date: 20111111
  Transmission Date: 20120403
  Serious: Yes (Other)
  Sender: FDA-Public Use
  Company Number: 1000024636

PATIENT
  Age: 44 Year
  Sex: Female

DRUGS (6)
  1. VIIBRYD [Suspect]
     Indication: ANXIETY
     Dosage: 40 MG (40 MG, 1 IN 1 D),ORAL
     Route: 048
     Dates: start: 20110923, end: 20111006
  2. VIIBRYD [Suspect]
     Indication: DEPRESSION
     Dosage: 40 MG (40 MG, 1 IN 1 D),ORAL
     Route: 048
     Dates: start: 20110923, end: 20111006
  3. VIIBRYD [Suspect]
     Indication: ANXIETY
     Dosage: 10  MG (10 MG, 1  IN 1 D),ORAL, 20 MG (20 MG, 1 IN 1 D),ORAL
     Route: 048
     Dates: start: 20110909, end: 20110915
  4. VIIBRYD [Suspect]
     Indication: DEPRESSION
     Dosage: 10  MG (10 MG, 1  IN 1 D),ORAL, 20 MG (20 MG, 1 IN 1 D),ORAL
     Route: 048
     Dates: start: 20110909, end: 20110915
  5. VIIBRYD [Suspect]
     Indication: ANXIETY
     Dosage: 10  MG (10 MG, 1  IN 1 D),ORAL, 20 MG (20 MG, 1 IN 1 D),ORAL
     Route: 048
     Dates: start: 20110916, end: 20110922
  6. VIIBRYD [Suspect]
     Indication: DEPRESSION
     Dosage: 10  MG (10 MG, 1  IN 1 D),ORAL, 20 MG (20 MG, 1 IN 1 D),ORAL
     Route: 048
     Dates: start: 20110916, end: 20110922

REACTIONS (5)
  - ELECTROCARDIOGRAM T WAVE AMPLITUDE DECREASED [None]
  - BLOOD PRESSURE INCREASED [None]
  - NIGHTMARE [None]
  - PHOTOPSIA [None]
  - TINNITUS [None]
